FAERS Safety Report 11446817 (Version 1)
Quarter: 2015Q3

REPORT INFORMATION
  Report Type: Spontaneous
  Country: US (occurrence: US)
  Receive Date: 20150831
  Receipt Date: 20150831
  Transmission Date: 20151125
  Serious: No
  Sender: FDA-Public Use
  Company Number: US-ELI_LILLY_AND_COMPANY-US200811003067

PATIENT
  Sex: Female

DRUGS (3)
  1. CYMBALTA [Suspect]
     Active Substance: DULOXETINE HYDROCHLORIDE
     Indication: INTERVERTEBRAL DISC DEGENERATION
     Dosage: 30 MG, UNK
     Dates: start: 20081112, end: 20081113
  2. DIAZEPAM. [Concomitant]
     Active Substance: DIAZEPAM
  3. IBUPROFEN. [Concomitant]
     Active Substance: IBUPROFEN

REACTIONS (8)
  - Feeling abnormal [Unknown]
  - Diarrhoea [Unknown]
  - Insomnia [Unknown]
  - Nerve injury [Unknown]
  - Abnormal dreams [Unknown]
  - Headache [Unknown]
  - Gastrointestinal pain [Unknown]
  - Emotional poverty [Unknown]

NARRATIVE: CASE EVENT DATE: 20081112
